FAERS Safety Report 4772846-1 (Version None)
Quarter: 2005Q3

REPORT INFORMATION
  Report Type: 
  Country: None (occurrence: None)
  Receive Date: 20050919
  Receipt Date: 20050610
  Transmission Date: 20060218
  Serious: Yes (Hospitalization, Disabling)
  Sender: FDA-Public Use
  Company Number: US-MERCK-0506USA01845

PATIENT
  Age: 58 Year
  Sex: Female
  Weight: 59 kg

DRUGS (8)
  1. VIOXX [Suspect]
     Indication: ARTHRITIS
     Route: 048
     Dates: start: 20010101, end: 20040401
  2. VIOXX [Suspect]
     Route: 048
     Dates: start: 20040401, end: 20040518
  3. FOSAMAX [Concomitant]
     Indication: OSTEOPOROSIS
     Route: 065
  4. SYNTHROID [Concomitant]
     Indication: HYPERTHYROIDISM
     Route: 065
  5. PREDNISONE [Concomitant]
     Indication: FIBROMYALGIA
     Route: 065
  6. LIPITOR [Concomitant]
     Indication: BLOOD CHOLESTEROL INCREASED
     Route: 065
     Dates: start: 20010901
  7. TYLENOL [Concomitant]
     Indication: HEADACHE
     Route: 065
     Dates: start: 20040501
  8. TYLENOL [Concomitant]
     Indication: OSTEOARTHRITIS
     Route: 065
     Dates: start: 20040501

REACTIONS (5)
  - APPENDICITIS [None]
  - DEPRESSION [None]
  - LUNG INFECTION [None]
  - MALIGNANT MELANOMA [None]
  - MYOCARDIAL INFARCTION [None]
